FAERS Safety Report 4369721-3 (Version None)
Quarter: 2004Q2

REPORT INFORMATION
  Report Type: 
  Country: None (occurrence: None)
  Receive Date: 20040527
  Receipt Date: 20040518
  Transmission Date: 20050107
  Serious: Yes (Hospitalization)
  Sender: FDA-Public Use
  Company Number: 04P-062-0261439-00

PATIENT
  Age: 18 Year
  Sex: Female
  Weight: 90 kg

DRUGS (3)
  1. ISOPTIN            (VERAPAMIL) [Suspect]
     Indication: SUICIDE ATTEMPT
     Dosage: 120 MG, 10 IN 1 DOSE, PER ORAL
     Route: 048
     Dates: start: 20040518, end: 20040518
  2. AMLODIPINE BESYLATE [Suspect]
     Indication: SUICIDE ATTEMPT
     Dosage: 10 TABLET, 1 IN 1 DOSE, PER ORAL
     Route: 048
     Dates: start: 20040518, end: 20040518
  3. UNKNOWN MEDICATION [Suspect]
     Indication: SUICIDE ATTEMPT
     Dosage: PER ORAL
     Route: 048
     Dates: start: 20040518, end: 20040518

REACTIONS (4)
  - ATRIOVENTRICULAR BLOCK FIRST DEGREE [None]
  - DIZZINESS [None]
  - MULTIPLE DRUG OVERDOSE INTENTIONAL [None]
  - SUICIDE ATTEMPT [None]
